FAERS Safety Report 21903520 (Version 1)
Quarter: 2023Q1

REPORT INFORMATION
  Report Type: Spontaneous
  Country: IN (occurrence: IN)
  Receive Date: 20230124
  Receipt Date: 20230124
  Transmission Date: 20230418
  Serious: Yes (Other)
  Sender: FDA-Public Use
  Company Number: IN-MYLANLABS-2023M1007821

PATIENT
  Age: 24 Year
  Sex: Male

DRUGS (4)
  1. ITRACONAZOLE [Suspect]
     Active Substance: ITRACONAZOLE
     Indication: Dermatophytosis
     Dosage: 100 MILLIGRAM, QD
     Route: 065
  2. TERBINAFINE [Suspect]
     Active Substance: TERBINAFINE
     Indication: Dermatophytosis
     Dosage: 250 MILLIGRAM, BID
     Route: 065
  3. FLUCONAZOLE [Suspect]
     Active Substance: FLUCONAZOLE
     Indication: Dermatophytosis
     Dosage: 100 MILLIGRAM, QD; ADMINISTERED UNDER A TRIAL
     Route: 065
  4. KETOCONAZOLE [Suspect]
     Active Substance: KETOCONAZOLE
     Indication: Dermatophytosis
     Dosage: 200 MILLIGRAM, BID
     Route: 065

REACTIONS (1)
  - Treatment failure [Unknown]
